FAERS Safety Report 20004475 (Version 1)
Quarter: 2021Q4

REPORT INFORMATION
  Report Type: Report from Study
  Country: None (occurrence: CL)
  Receive Date: 20211028
  Receipt Date: 20211028
  Transmission Date: 20220303
  Serious: Yes (Other)
  Sender: FDA-Public Use
  Company Number: CL-ABBVIE-21K-034-4138717-00

PATIENT
  Age: 47 Year
  Sex: Female

DRUGS (1)
  1. HUMIRA [Suspect]
     Active Substance: ADALIMUMAB
     Indication: Rheumatoid arthritis
     Route: 058
     Dates: start: 20180413

REACTIONS (4)
  - Hernia [Not Recovered/Not Resolved]
  - Bone cancer [Unknown]
  - Dysstasia [Unknown]
  - Discomfort [Unknown]

NARRATIVE: CASE EVENT DATE: 20211004
